FAERS Safety Report 24015496 (Version 1)
Quarter: 2024Q2

REPORT INFORMATION
  Report Type: Spontaneous
  Country: US (occurrence: None)
  Receive Date: 20240626
  Receipt Date: 20240626
  Transmission Date: 20240715
  Serious: Yes (Life-Threatening, Hospitalization, Disabling)
  Sender: FDA-Public Use
  Company Number: None

PATIENT
  Age: 66 Year
  Sex: Female
  Weight: 88.45 kg

DRUGS (8)
  1. DULOXETINE [Suspect]
     Active Substance: DULOXETINE
     Indication: Arthritis
     Dosage: 90 COUNT 1 A DAY BY MOUTH?
     Route: 048
     Dates: start: 201504, end: 202406
  2. AMLODIPINE BESYLATE [Concomitant]
     Active Substance: AMLODIPINE BESYLATE
  3. ALLOPURINOL [Concomitant]
     Active Substance: ALLOPURINOL
  4. VALUANTIN HYDROCHLOROTHIAZIDE [Concomitant]
  5. ATORVASTATIN [Concomitant]
     Active Substance: ATORVASTATIN
  6. MAGNESIUM CHLORIDE\MAGNESIUM GLUCONATE [Concomitant]
     Active Substance: MAGNESIUM CHLORIDE\MAGNESIUM GLUCONATE
  7. GABAPENTIN [Concomitant]
     Active Substance: GABAPENTIN
  8. WOMENS 50+ MULTIVITAMIN [Concomitant]

REACTIONS (4)
  - Liver function test increased [None]
  - Haematemesis [None]
  - Faeces discoloured [None]
  - Pain [None]

NARRATIVE: CASE EVENT DATE: 20240110
